FAERS Safety Report 5952139-7 (Version None)
Quarter: 2008Q4

REPORT INFORMATION
  Report Type: 
  Country: None (occurrence: None)
  Receive Date: 20081113
  Receipt Date: 20080616
  Transmission Date: 20090506
  Serious: No
  Sender: FDA-Public Use
  Company Number: A0734222A

PATIENT
  Age: 68 Year
  Sex: Female

DRUGS (6)
  1. COREG [Suspect]
     Indication: DRUG USE FOR UNKNOWN INDICATION
     Route: 048
  2. ZOCOR [Suspect]
  3. TEKTURNA [Suspect]
  4. COZAAR [Suspect]
  5. HYDRALAZINE HCL [Suspect]
  6. NORVASC [Suspect]

REACTIONS (5)
  - COUGH [None]
  - HYPERTENSION [None]
  - MUSCULOSKELETAL DISORDER [None]
  - OEDEMA PERIPHERAL [None]
  - PAIN IN EXTREMITY [None]
